FAERS Safety Report 14981773 (Version 1)
Quarter: 2018Q2

REPORT INFORMATION
  Report Type: Report from Study
  Country: US (occurrence: US)
  Receive Date: 20180607
  Receipt Date: 20180607
  Transmission Date: 20180711
  Serious: Yes (Death, Other)
  Sender: FDA-Public Use
  Company Number: US-ROCHE-2134184

PATIENT
  Age: 85 Year
  Sex: Male
  Weight: 80.81 kg

DRUGS (2)
  1. ACTEMRA [Suspect]
     Active Substance: TOCILIZUMAB
     Indication: POLYMYALGIA RHEUMATICA
  2. ACTEMRA [Suspect]
     Active Substance: TOCILIZUMAB
     Indication: TEMPORAL ARTERITIS
     Dosage: 1 MONTH SUPPLY REFILL 5 TIMES
     Route: 058

REACTIONS (2)
  - Death [Fatal]
  - Lung infection [Unknown]

NARRATIVE: CASE EVENT DATE: 20180530
